FAERS Safety Report 15711342 (Version 5)
Quarter: 2019Q4

REPORT INFORMATION
  Report Type: Spontaneous
  Country: FR (occurrence: FR)
  Receive Date: 20181211
  Receipt Date: 20191115
  Transmission Date: 20200122
  Serious: Yes (Hospitalization, Disabling, Other)
  Sender: FDA-Public Use
  Company Number: FR-TEVA-2018-FR-986779

PATIENT
  Age: 28 Year
  Sex: Female
  Weight: 60 kg

DRUGS (23)
  1. CYPROTERONE ACETATE [IN FEMALE] [Suspect]
     Active Substance: CYPROTERONE ACETATE
     Dosage: .5 DOSAGE FORMS DAILY; 0.5 DF, QD
     Route: 048
     Dates: end: 20130816
  2. CYPROTERONE ACETATE [IN FEMALE] [Suspect]
     Active Substance: CYPROTERONE ACETATE
     Dosage: .5 DOSAGE FORMS DAILY; 0.5 DF, QD
     Route: 048
     Dates: end: 20161124
  3. CYPROTERONE ACETATE [IN FEMALE] [Suspect]
     Active Substance: CYPROTERONE ACETATE
     Indication: ALOPECIA
     Dosage: .5 DOSAGE FORMS DAILY; 0.5DF, QD
     Route: 048
     Dates: start: 20140818, end: 20170510
  4. CYPROTERONE ACETATE [IN FEMALE] [Suspect]
     Active Substance: CYPROTERONE ACETATE
     Dosage: .5 DOSAGE FORMS DAILY; 0.5 DF, QD
     Route: 048
  5. OROMONE [Concomitant]
     Active Substance: ESTRADIOL
     Indication: CONTRACEPTION
     Dosage: 2 MG
     Dates: start: 201312
  6. CYPROTERONE ACETATE/ETHINYLESTRADIOL [Suspect]
     Active Substance: CYPROTERONE ACETATE\ETHINYL ESTRADIOL
     Route: 065
  7. CYPROTERONE ACETATE [IN FEMALE] [Suspect]
     Active Substance: CYPROTERONE ACETATE
     Dosage: .5 DOSAGE FORMS DAILY; 0.5 DF, QD
     Route: 048
     Dates: end: 20110830
  8. CYPROTERONE ACETATE [IN FEMALE] [Suspect]
     Active Substance: CYPROTERONE ACETATE
     Dosage: .5 DOSAGE FORMS DAILY; 0.5 DF, QD
     Route: 048
     Dates: end: 20130816
  9. OROMONE [Concomitant]
     Active Substance: ESTRADIOL
     Dates: start: 2007
  10. ESTRADIOL (ESTRADIOL) [Suspect]
     Active Substance: ESTRADIOL
     Indication: ACNE
     Dosage: 1 DOSAGE FORMS DAILY; 1 DF, QD
     Route: 048
     Dates: start: 2008, end: 20170920
  11. CYPROTERONE ACETATE/ETHINYLESTRADIOL [Suspect]
     Active Substance: CYPROTERONE ACETATE\ETHINYL ESTRADIOL
     Indication: ALOPECIA
     Dosage: 2MG, CONT
     Route: 048
  12. CYPROTERONE ACETATE [IN FEMALE] [Suspect]
     Active Substance: CYPROTERONE ACETATE
     Dosage: 0.5 DF, QD
     Route: 048
     Dates: start: 20090705, end: 20100820
  13. CYPROTERONE ACETATE [IN FEMALE] [Suspect]
     Active Substance: CYPROTERONE ACETATE
     Dosage: 0.5 DF, QD
     Route: 048
  14. OROMONE [Concomitant]
     Active Substance: ESTRADIOL
     Dates: start: 200907
  15. CYPROTERONE ACETATE/ETHINYLESTRADIOL [Suspect]
     Active Substance: CYPROTERONE ACETATE\ETHINYL ESTRADIOL
     Indication: ACNE
     Dosage: 2MG, CONT
     Route: 048
  16. CYPROTERONE ACETATE [IN FEMALE] [Suspect]
     Active Substance: CYPROTERONE ACETATE
     Dosage: .5 DOSAGE FORMS DAILY; 0.5 DF, QD
     Route: 048
     Dates: end: 20100715
  17. CYPROTERONE ACETATE [IN FEMALE] [Suspect]
     Active Substance: CYPROTERONE ACETATE
     Dosage: .5 DOSAGE FORMS DAILY; 0.5 DF, QD
     Route: 048
     Dates: start: 20130816, end: 20140818
  18. ESTRADIOL (ESTRADIOL) [Suspect]
     Active Substance: ESTRADIOL
     Indication: ALOPECIA
     Route: 048
  19. CYPROTERONE ACETATE [IN FEMALE] [Suspect]
     Active Substance: CYPROTERONE ACETATE
     Dosage: .5 DOSAGE FORMS DAILY; 0.5DF, QD
     Route: 048
     Dates: start: 20101221, end: 20110705
  20. ESTRADIOL (ESTRADIOL) [Suspect]
     Active Substance: ESTRADIOL
     Indication: ALOPECIA
     Dosage: 1 DOSAGE FORMS DAILY; 1DF, QD
     Dates: start: 20090705, end: 20170920
  21. CYPROTERONE ACETATE [IN FEMALE] [Suspect]
     Active Substance: CYPROTERONE ACETATE
     Indication: ACNE
     Dosage: .5 DOSAGE FORMS DAILY; 0.5 DF, QD
     Route: 048
     Dates: start: 20170510, end: 20170920
  22. CYPROTERONE ACETATE [IN FEMALE] [Suspect]
     Active Substance: CYPROTERONE ACETATE
     Dosage: .5 DOSAGE FORMS DAILY; 0.5 DF, QD
     Route: 048
     Dates: start: 20130816, end: 20140818
  23. CYPROTERONE ACETATE [IN FEMALE] [Suspect]
     Active Substance: CYPROTERONE ACETATE
     Dosage: .5 DOSAGE FORMS DAILY; 0.5 DF, QD
     Route: 048
     Dates: start: 20110705, end: 20110830

REACTIONS (54)
  - Asthenia [Recovered/Resolved with Sequelae]
  - Visual impairment [Unknown]
  - Gait disturbance [Not Recovered/Not Resolved]
  - Aphasia [Unknown]
  - Coordination abnormal [Not Recovered/Not Resolved]
  - Clumsiness [Unknown]
  - Muscular weakness [Not Recovered/Not Resolved]
  - Cognitive disorder [Unknown]
  - Eye haematoma [Unknown]
  - Product dose omission [Unknown]
  - Hemiplegia [Unknown]
  - Mobility decreased [Recovered/Resolved with Sequelae]
  - Neck pain [Unknown]
  - Fatigue [Recovered/Resolved with Sequelae]
  - Disorientation [Unknown]
  - Pain [Unknown]
  - Weight increased [Not Recovered/Not Resolved]
  - Peripheral sensory neuropathy [Unknown]
  - Paraesthesia [Not Recovered/Not Resolved]
  - Formication [Recovered/Resolved with Sequelae]
  - Headache [Unknown]
  - Brain herniation [Unknown]
  - Meningioma [Not Recovered/Not Resolved]
  - Speech disorder [Recovered/Resolved with Sequelae]
  - Memory impairment [Recovered/Resolved with Sequelae]
  - Hemiplegia [Unknown]
  - Joint range of motion decreased [Recovered/Resolved with Sequelae]
  - Hypoaesthesia [Unknown]
  - Hemiplegia [Not Recovered/Not Resolved]
  - Disturbance in attention [Recovered/Resolved with Sequelae]
  - Off label use [Unknown]
  - Product use in unapproved indication [Unknown]
  - Facial paralysis [Not Recovered/Not Resolved]
  - Loss of personal independence in daily activities [Unknown]
  - Diplopia [Not Recovered/Not Resolved]
  - Language disorder [Recovered/Resolved with Sequelae]
  - Dysarthria [Not Recovered/Not Resolved]
  - Balance disorder [Recovered/Resolved with Sequelae]
  - Partial seizures [Unknown]
  - Paraesthesia [Recovered/Resolved with Sequelae]
  - Nervous system disorder [Unknown]
  - Hemiparesis [Not Recovered/Not Resolved]
  - Discomfort [Unknown]
  - Hemiparaesthesia [Not Recovered/Not Resolved]
  - Hemiparesis [Unknown]
  - Balance disorder [Not Recovered/Not Resolved]
  - Executive dysfunction [Recovered/Resolved with Sequelae]
  - Hemiparaesthesia [Unknown]
  - Cognitive disorder [Recovered/Resolved with Sequelae]
  - Eye haematoma [Unknown]
  - Fatigue [Not Recovered/Not Resolved]
  - Intracranial mass [Unknown]
  - Disturbance in attention [Unknown]
  - Memory impairment [Unknown]

NARRATIVE: CASE EVENT DATE: 2017
